FAERS Safety Report 9894349 (Version 2)
Quarter: 2014Q1

REPORT INFORMATION
  Report Type: Spontaneous
  Country: CA (occurrence: CA)
  Receive Date: 20140213
  Receipt Date: 20140213
  Transmission Date: 20141002
  Serious: Yes (Other)
  Sender: FDA-Public Use
  Company Number: CA-GILEAD-2012-0055991

PATIENT
  Age: 66 Year
  Sex: Male

DRUGS (13)
  1. AMBRISENTAN [Suspect]
     Indication: PULMONARY HYPERTENSION
     Dosage: 5MG PER DAY
     Route: 048
     Dates: start: 20120405
  2. REVATIO [Concomitant]
  3. ZOCOR [Concomitant]
  4. IMURAN                             /00001501/ [Concomitant]
  5. PERCOCET                           /00446701/ [Concomitant]
  6. LASIX                              /00032601/ [Concomitant]
     Dosage: 20MG PER DAY
     Route: 065
  7. ASA [Concomitant]
     Dosage: 81MG UNKNOWN
     Route: 065
  8. ASA [Concomitant]
     Dosage: 81MG UNKNOWN
     Route: 065
  9. PANTOPRAZOLE                       /01263204/ [Concomitant]
  10. IMURAN                             /00001501/ [Concomitant]
  11. PERCOCET                           /00867901/ [Concomitant]
  12. LASIX                              /00032601/ [Concomitant]
     Dosage: 20MG PER DAY
     Route: 065
  13. PANTOPRAZOLE MAGNESIUM [Concomitant]

REACTIONS (4)
  - Clavicle fracture [Not Recovered/Not Resolved]
  - Epistaxis [Not Recovered/Not Resolved]
  - Fall [Unknown]
  - Hand fracture [Not Recovered/Not Resolved]
